FAERS Safety Report 17200970 (Version 2)
Quarter: 2020Q1

REPORT INFORMATION
  Report Type: Report from Study
  Country: IE (occurrence: IE)
  Receive Date: 20191226
  Receipt Date: 20200115
  Transmission Date: 20200409
  Serious: Yes (Death, Hospitalization)
  Sender: FDA-Public Use
  Company Number: IE-ROCHE-2420852

PATIENT
  Age: 45 Year
  Sex: Female

DRUGS (91)
  1. DIOCTYL [Concomitant]
     Active Substance: DOCUSATE SODIUM
     Route: 048
     Dates: start: 20190806
  2. RED BLOOD CELLS [Concomitant]
     Active Substance: HUMAN RED BLOOD CELL
     Indication: HAEMOGLOBIN
     Dosage: DOSE 1 UNIT
     Route: 042
     Dates: start: 20190815, end: 20190815
  3. ZOPICLONE [Concomitant]
     Active Substance: ZOPICLONE
     Route: 048
     Dates: start: 20190903
  4. PREGABALIN. [Concomitant]
     Active Substance: PREGABALIN
     Route: 048
     Dates: start: 20190802, end: 20190807
  5. OXYCONTIN [Concomitant]
     Active Substance: OXYCODONE HYDROCHLORIDE
     Route: 048
     Dates: start: 20190717, end: 20190806
  6. OXYCONTIN [Concomitant]
     Active Substance: OXYCODONE HYDROCHLORIDE
     Route: 048
     Dates: start: 20190811, end: 20190814
  7. OXYCONTIN [Concomitant]
     Active Substance: OXYCODONE HYDROCHLORIDE
     Route: 048
     Dates: start: 20190817, end: 20190817
  8. OXYCONTIN [Concomitant]
     Active Substance: OXYCODONE HYDROCHLORIDE
     Route: 048
     Dates: start: 20190821, end: 20190826
  9. OXYNORM [Concomitant]
     Active Substance: OXYCODONE HYDROCHLORIDE
     Route: 048
     Dates: start: 20190416, end: 20190716
  10. ESCITALOPRAM [Concomitant]
     Active Substance: ESCITALOPRAM OXALATE
     Route: 048
  11. STEMETIL [PROCHLORPERAZINE] [Concomitant]
     Active Substance: PROCHLORPERAZINE
     Route: 048
  12. MOVICOL [Concomitant]
     Active Substance: POLYETHYLENE GLYCOL 3350\POTASSIUM CHLORIDE\SODIUM BICARBONATE\SODIUM CHLORIDE
     Dosage: DOSE 1 OTHER
     Route: 048
  13. CEFUROXIME. [Concomitant]
     Active Substance: CEFUROXIME
     Route: 042
     Dates: start: 20190803, end: 20190803
  14. LIDOCAINE. [Concomitant]
     Active Substance: LIDOCAINE
     Route: 061
     Dates: start: 20190815, end: 20190817
  15. CYCLIZINE [Concomitant]
     Active Substance: CYCLIZINE
     Route: 048
     Dates: start: 20190826, end: 20190903
  16. ALPRAZOLAM. [Concomitant]
     Active Substance: ALPRAZOLAM
     Route: 048
     Dates: start: 20190807
  17. GEMCITABINE. [Suspect]
     Active Substance: GEMCITABINE
     Indication: MALIGNANT NEOPLASM OF UNKNOWN PRIMARY SITE
     Dosage: FOR UP TO 6 CYCLES (CYCLE = 21 DAYS).?FIRST DOSE ADMINISTRED PRIOR TO SAE: 03/SEP/2019?DOSE (1976) O
     Route: 042
  18. PARACETAMOL [Concomitant]
     Active Substance: ACETAMINOPHEN
     Indication: HIP ARTHROPLASTY
     Route: 048
  19. PARACETAMOL [Concomitant]
     Active Substance: ACETAMINOPHEN
     Route: 048
     Dates: start: 20190827, end: 20190827
  20. DEXAMETHASONE. [Concomitant]
     Active Substance: DEXAMETHASONE
     Route: 048
     Dates: start: 20190831, end: 20190902
  21. DEXAMETHASONE. [Concomitant]
     Active Substance: DEXAMETHASONE
     Route: 048
     Dates: start: 20190903, end: 20190908
  22. RANITIDINE. [Concomitant]
     Active Substance: RANITIDINE
     Route: 042
     Dates: start: 20190627, end: 20190627
  23. AKYNZEO [Concomitant]
     Active Substance: NETUPITANT\PALONOSETRON HYDROCHLORIDE
     Dosage: DOSE 0.5/300 MG
     Route: 048
     Dates: start: 20190718, end: 20190718
  24. AKYNZEO [Concomitant]
     Active Substance: NETUPITANT\PALONOSETRON HYDROCHLORIDE
     Dosage: DOSE 0.5/300 MG
     Route: 048
     Dates: start: 20190827, end: 20190827
  25. ENOXAPARIN [Concomitant]
     Active Substance: ENOXAPARIN
     Route: 058
     Dates: start: 20190821, end: 20190821
  26. SENNA ALEXANDRINA [Concomitant]
     Active Substance: SENNA LEAF
     Dosage: DOSE 2 OTHER
     Route: 048
     Dates: start: 20190801
  27. CYCLIZINE [Concomitant]
     Active Substance: CYCLIZINE
     Route: 048
     Dates: start: 20190826, end: 20190903
  28. CLEXANE [Concomitant]
     Active Substance: ENOXAPARIN SODIUM
     Route: 058
     Dates: start: 20190826, end: 20190903
  29. PANTOPRAZOLE [Concomitant]
     Active Substance: PANTOPRAZOLE
     Route: 048
     Dates: start: 20190417
  30. OXYCONTIN [Concomitant]
     Active Substance: OXYCODONE HYDROCHLORIDE
     Route: 048
     Dates: start: 20190815, end: 20190815
  31. OXYCONTIN [Concomitant]
     Active Substance: OXYCODONE HYDROCHLORIDE
     Route: 048
     Dates: start: 20190809, end: 20190810
  32. OXYCONTIN [Concomitant]
     Active Substance: OXYCODONE HYDROCHLORIDE
     Route: 048
     Dates: start: 20190827, end: 20190903
  33. OXYNORM [Concomitant]
     Active Substance: OXYCODONE HYDROCHLORIDE
     Route: 048
     Dates: start: 20190717
  34. OXYNORM [Concomitant]
     Active Substance: OXYCODONE HYDROCHLORIDE
     Route: 048
     Dates: start: 20190826, end: 20190903
  35. DEXAMETHASONE. [Concomitant]
     Active Substance: DEXAMETHASONE
     Route: 048
     Dates: start: 20190817, end: 20190828
  36. DEXAMETHASONE. [Concomitant]
     Active Substance: DEXAMETHASONE
     Route: 048
     Dates: start: 20190717, end: 20190718
  37. AKYNZEO [Concomitant]
     Active Substance: NETUPITANT\PALONOSETRON HYDROCHLORIDE
     Dosage: DOSE 0.5/300 MG
     Route: 048
     Dates: start: 20190529, end: 20190529
  38. DIFENE [Concomitant]
     Active Substance: DICLOFENAC SODIUM
     Route: 054
     Dates: start: 20190804, end: 20190804
  39. ALPRAZOLAM. [Concomitant]
     Active Substance: ALPRAZOLAM
     Route: 048
     Dates: start: 20190826, end: 20190904
  40. OXYGEN. [Concomitant]
     Active Substance: OXYGEN
     Dosage: DOSE 5 OTHER
     Route: 045
     Dates: start: 20190703, end: 20190703
  41. FENTANYL. [Concomitant]
     Active Substance: FENTANYL
     Indication: HIP ARTHROPLASTY
     Route: 065
     Dates: start: 20190803, end: 20190803
  42. ATEZOLIZUMAB. [Suspect]
     Active Substance: ATEZOLIZUMAB
     Indication: MALIGNANT NEOPLASM OF UNKNOWN PRIMARY SITE
     Dosage: THERAPY START DATE :07/JAN/2020
     Route: 042
  43. OXYCONTIN [Concomitant]
     Active Substance: OXYCODONE HYDROCHLORIDE
     Route: 048
     Dates: start: 20190516, end: 20190516
  44. OXYCONTIN [Concomitant]
     Active Substance: OXYCODONE HYDROCHLORIDE
     Route: 048
     Dates: start: 20190807, end: 20190807
  45. DEXAMETHASONE. [Concomitant]
     Active Substance: DEXAMETHASONE
     Route: 048
     Dates: start: 20190516, end: 20190816
  46. CHLORPHENAMINE [Concomitant]
     Active Substance: CHLORPHENIRAMINE MALEATE
     Route: 042
     Dates: start: 20190718, end: 20190718
  47. RANITIDINE. [Concomitant]
     Active Substance: RANITIDINE
     Route: 042
     Dates: start: 20190529, end: 20190529
  48. RANITIDINE. [Concomitant]
     Active Substance: RANITIDINE
     Route: 042
     Dates: start: 20190718, end: 20190718
  49. NETUPITANT [Concomitant]
     Active Substance: NETUPITANT
     Route: 048
     Dates: start: 20190627, end: 20190627
  50. DIFENE [Concomitant]
     Active Substance: DICLOFENAC SODIUM
     Route: 048
     Dates: start: 20190920, end: 20190920
  51. MANNITOL. [Concomitant]
     Active Substance: MANNITOL
     Route: 042
     Dates: start: 20190916, end: 20190916
  52. PREGABALIN. [Concomitant]
     Active Substance: PREGABALIN
     Route: 048
     Dates: start: 20190516
  53. PREGABALIN. [Concomitant]
     Active Substance: PREGABALIN
     Route: 048
     Dates: start: 20190813, end: 20190813
  54. OXYCONTIN [Concomitant]
     Active Substance: OXYCODONE HYDROCHLORIDE
     Route: 048
     Dates: start: 20190811, end: 20190811
  55. OXYCONTIN [Concomitant]
     Active Substance: OXYCODONE HYDROCHLORIDE
     Route: 048
     Dates: start: 20190904, end: 20190904
  56. ZOLPIDEM [Concomitant]
     Active Substance: ZOLPIDEM TARTRATE
     Route: 048
     Dates: start: 20190801
  57. PARACETAMOL [Concomitant]
     Active Substance: ACETAMINOPHEN
     Route: 042
     Dates: start: 20190803, end: 20190803
  58. CHLORPHENAMINE [Concomitant]
     Active Substance: CHLORPHENIRAMINE MALEATE
     Route: 042
     Dates: start: 20190529, end: 20190529
  59. CHLORPHENAMINE [Concomitant]
     Active Substance: CHLORPHENIRAMINE MALEATE
     Route: 042
     Dates: start: 20190627, end: 20190627
  60. ACYCLOVIR [ACICLOVIR] [Concomitant]
     Active Substance: ACYCLOVIR
     Route: 048
     Dates: start: 20190607, end: 20190621
  61. ENOXAPARIN [Concomitant]
     Active Substance: ENOXAPARIN
     Route: 058
     Dates: start: 20190804, end: 20190817
  62. CEFUROXIME. [Concomitant]
     Active Substance: CEFUROXIME
     Route: 042
     Dates: start: 20190804, end: 20190804
  63. LACTULOSE. [Concomitant]
     Active Substance: LACTULOSE
     Route: 048
     Dates: start: 20190812
  64. CYCLIZINE [Concomitant]
     Active Substance: CYCLIZINE
     Route: 048
     Dates: start: 20190816, end: 20190825
  65. CYCLIZINE [Concomitant]
     Active Substance: CYCLIZINE
     Route: 048
     Dates: start: 20190904
  66. LASIX [Concomitant]
     Active Substance: FUROSEMIDE
     Route: 048
     Dates: start: 20190919, end: 20190920
  67. PREGABALIN. [Concomitant]
     Active Substance: PREGABALIN
     Route: 048
     Dates: start: 20190809, end: 20190812
  68. PREGABALIN. [Concomitant]
     Active Substance: PREGABALIN
     Route: 048
     Dates: start: 20190814, end: 20190902
  69. OXYCONTIN [Concomitant]
     Active Substance: OXYCODONE HYDROCHLORIDE
     Route: 048
     Dates: start: 20190801, end: 20190806
  70. DEXAMETHASONE. [Concomitant]
     Active Substance: DEXAMETHASONE
     Route: 048
     Dates: start: 20190528, end: 20190529
  71. AKYNZEO [Concomitant]
     Active Substance: NETUPITANT\PALONOSETRON HYDROCHLORIDE
     Dosage: DOSE 0.5/300 MG
     Route: 048
     Dates: start: 20190916, end: 20190916
  72. ALPRAZOLAM. [Concomitant]
     Active Substance: ALPRAZOLAM
     Route: 048
     Dates: start: 20190802, end: 20190804
  73. MICROLAX [SODIUM CITRATE;SODIUM LAURYL SULFOACETATE;SORBITOL] [Concomitant]
     Active Substance: SODIUM CITRATE\SODIUM LAURYL SULFOACETATE\SORBITOL
     Dosage: DOSE 1 OTHER
     Route: 054
     Dates: start: 20190829, end: 20190904
  74. PREGABALIN. [Concomitant]
     Active Substance: PREGABALIN
     Route: 048
     Dates: start: 20190903
  75. OXYCONTIN [Concomitant]
     Active Substance: OXYCODONE HYDROCHLORIDE
     Route: 048
     Dates: start: 20190807, end: 20190808
  76. OXYCONTIN [Concomitant]
     Active Substance: OXYCODONE HYDROCHLORIDE
     Route: 048
     Dates: start: 20190809, end: 20190809
  77. OXYCONTIN [Concomitant]
     Active Substance: OXYCODONE HYDROCHLORIDE
     Route: 048
     Dates: start: 20190816, end: 20190816
  78. OXYNORM [Concomitant]
     Active Substance: OXYCODONE HYDROCHLORIDE
     Route: 048
     Dates: start: 20190802, end: 20190817
  79. DEXAMETHASONE. [Concomitant]
     Active Substance: DEXAMETHASONE
     Route: 048
     Dates: start: 20190626, end: 20190627
  80. DEXAMETHASONE. [Concomitant]
     Active Substance: DEXAMETHASONE
     Route: 048
     Dates: start: 20190829, end: 20190830
  81. PALONOSETRON. [Concomitant]
     Active Substance: PALONOSETRON HYDROCHLORIDE
     Route: 048
     Dates: start: 20190627, end: 20190627
  82. ZOVIRAX [Concomitant]
     Active Substance: ACYCLOVIR
     Dosage: DOSE 5 OTHER
     Route: 061
     Dates: start: 20190607
  83. LACTULOSE. [Concomitant]
     Active Substance: LACTULOSE
     Route: 048
     Dates: start: 20190811, end: 20190811
  84. CYCLIZINE [Concomitant]
     Active Substance: CYCLIZINE
     Route: 030
     Dates: start: 20190810, end: 20190810
  85. CLEXANE [Concomitant]
     Active Substance: ENOXAPARIN SODIUM
     Route: 058
     Dates: start: 20190920, end: 20190923
  86. SODIUM CHLORIDE 0.9% [Concomitant]
     Active Substance: SODIUM CHLORIDE
     Route: 042
     Dates: start: 20190916, end: 20190916
  87. MIDAZOLAM HYDROCHLORIDE. [Concomitant]
     Active Substance: MIDAZOLAM HYDROCHLORIDE
     Indication: HIP ARTHROPLASTY
     Route: 065
     Dates: start: 20190803, end: 20190803
  88. PROPOFOL. [Concomitant]
     Active Substance: PROPOFOL
     Indication: HIP ARTHROPLASTY
     Route: 065
     Dates: start: 20190803, end: 20190803
  89. CISPLATIN. [Suspect]
     Active Substance: CISPLATIN
     Indication: MALIGNANT NEOPLASM OF UNKNOWN PRIMARY SITE
     Dosage: FOR UP TO 6 CYCLES (CYCLE = 21 DAYS).?DOSE (49) OF FIRST AND LAST TREATMENT STUDY DRUG CISPLATIN WA
     Route: 042
  90. OXYCONTIN [Concomitant]
     Active Substance: OXYCODONE HYDROCHLORIDE
     Route: 048
     Dates: start: 20190815, end: 20190815
  91. ZOLPIDEM [Concomitant]
     Active Substance: ZOLPIDEM TARTRATE
     Route: 048
     Dates: end: 20190731

REACTIONS (3)
  - Chest pain [Recovered/Resolved]
  - Sepsis [Recovering/Resolving]
  - Jugular vein thrombosis [Recovering/Resolving]

NARRATIVE: CASE EVENT DATE: 20190821
